FAERS Safety Report 8543492-9 (Version None)
Quarter: 2012Q3

REPORT INFORMATION
  Report Type: 
  Country: None (occurrence: None)
  Receive Date: 20120727
  Receipt Date: 20120724
  Transmission Date: 20120928
  Serious: Yes (Death, Hospitalization, Other)
  Sender: FDA-Public Use
  Company Number: PHHY2012EC061748

PATIENT
  Sex: Female

DRUGS (3)
  1. STALEVO 100 [Suspect]
     Indication: PARKINSON'S DISEASE
     Dosage: 1 DF, TID
     Route: 048
     Dates: start: 20110729
  2. MULTI-VITAMINS [Concomitant]
     Dosage: 1 DF,DAILY
  3. SELEGILINE [Concomitant]
     Dosage: 5 MG, BID
     Dates: start: 20110701

REACTIONS (6)
  - RESPIRATORY ARREST [None]
  - DYSPNOEA [None]
  - TRISMUS [None]
  - PNEUMONIA [None]
  - MUSCLE RIGIDITY [None]
  - TACHYCARDIA [None]
